FAERS Safety Report 7297438-4 (Version None)
Quarter: 2011Q1

REPORT INFORMATION
  Report Type: 
  Country: None (occurrence: None)
  Receive Date: 20110216
  Receipt Date: 20110216
  Transmission Date: 20110831
  Serious: Yes (Other)
  Sender: FDA-Public Use
  Company Number: JP-PFIZER INC-2011027548

PATIENT
  Age: 81 Year
  Sex: Female

DRUGS (2)
  1. NORVASC [Suspect]
     Dosage: 5 MG, DAILY
     Dates: start: 20101224
  2. NORVASC [Suspect]
     Dosage: 2.5 MG, DAILY
     Dates: end: 20101223

REACTIONS (2)
  - SENSATION OF HEAVINESS [None]
  - EYELID PTOSIS [None]
